FAERS Safety Report 6256071-3 (Version None)
Quarter: 2009Q2

REPORT INFORMATION
  Report Type: 
  Country: None (occurrence: None)
  Receive Date: 20090630
  Receipt Date: 20090630
  Transmission Date: 20091009
  Serious: Yes (Other)
  Sender: FDA-Public Use
  Company Number: None

PATIENT
  Age: 59 Year
  Sex: Male
  Weight: 76.6579 kg

DRUGS (1)
  1. TOPIRAMATE [Suspect]
     Indication: PARTIAL SEIZURES
     Dosage: 50MG 2 X DAILY PO
     Route: 048
     Dates: start: 20090601, end: 20090605

REACTIONS (4)
  - CONDITION AGGRAVATED [None]
  - CONVULSION [None]
  - DRUG INEFFECTIVE [None]
  - PRODUCT SUBSTITUTION ISSUE [None]
